FAERS Safety Report 10048320 (Version 3)
Quarter: 2015Q3

REPORT INFORMATION
  Report Type: Spontaneous
  Country: US (occurrence: US)
  Receive Date: 20140331
  Receipt Date: 20150709
  Transmission Date: 20151125
  Serious: Yes (Other)
  Sender: FDA-Public Use
  Company Number: US-GLAXOSMITHKLINE-A1066710A

PATIENT
  Age: 29 Year
  Sex: Male

DRUGS (2)
  1. RITALIN [Suspect]
     Active Substance: METHYLPHENIDATE HYDROCHLORIDE
     Indication: ATTENTION DEFICIT/HYPERACTIVITY DISORDER
  2. BUPROPION HYDROCHLORIDE. [Suspect]
     Active Substance: BUPROPION HYDROCHLORIDE
     Indication: ANXIETY
     Route: 048
     Dates: start: 201008, end: 201008

REACTIONS (21)
  - Muscle spasticity [Not Recovered/Not Resolved]
  - Irritability [Unknown]
  - Generalised tonic-clonic seizure [Not Recovered/Not Resolved]
  - Brain injury [Unknown]
  - Dissociation [Unknown]
  - Panic reaction [Unknown]
  - Insomnia [Unknown]
  - Feeling hot [Not Recovered/Not Resolved]
  - Balance disorder [Not Recovered/Not Resolved]
  - Disturbance in attention [Not Recovered/Not Resolved]
  - Speech disorder [Unknown]
  - Psychiatric symptom [Unknown]
  - Aggression [Unknown]
  - Visual field defect [Unknown]
  - Fatigue [Unknown]
  - Suicidal ideation [Unknown]
  - Immobile [Not Recovered/Not Resolved]
  - Tremor [Not Recovered/Not Resolved]
  - Abnormal dreams [Not Recovered/Not Resolved]
  - Urinary incontinence [Not Recovered/Not Resolved]
  - Feeling abnormal [Unknown]

NARRATIVE: CASE EVENT DATE: 201008
